FAERS Safety Report 4633125-6 (Version None)
Quarter: 2005Q2

REPORT INFORMATION
  Report Type: 
  Country: None (occurrence: None)
  Receive Date: 20050412
  Receipt Date: 20050222
  Transmission Date: 20051028
  Serious: Yes (Other)
  Sender: FDA-Public Use
  Company Number: JP-GLAXOSMITHKLINE-B0373171A

PATIENT
  Age: 88 Year
  Sex: Male

DRUGS (2)
  1. PAXIL [Suspect]
     Dosage: 10MG PER DAY
     Route: 048
  2. LITHIUM CARBONATE [Concomitant]
     Dosage: 400MG UNKNOWN
     Route: 065

REACTIONS (6)
  - CEREBRAL ATROPHY [None]
  - DELIRIUM [None]
  - DEPRESSED LEVEL OF CONSCIOUSNESS [None]
  - HYPERKINESIA [None]
  - LOGORRHOEA [None]
  - MANIA [None]
